FAERS Safety Report 24684627 (Version 1)
Quarter: 2024Q4

REPORT INFORMATION
  Report Type: Spontaneous
  Country: TR (occurrence: TR)
  Receive Date: 20241202
  Receipt Date: 20241202
  Transmission Date: 20250114
  Serious: Yes (Other)
  Sender: ALKEM
  Company Number: TR-ALKEM LABORATORIES LIMITED-TR-ALKEM-2024-15677

PATIENT
  Age: 47 Year
  Sex: Male

DRUGS (6)
  1. ISONIAZID [Suspect]
     Active Substance: ISONIAZID
     Indication: Extrapulmonary tuberculosis
     Dosage: UNK
     Route: 065
  2. ISONIAZID [Suspect]
     Active Substance: ISONIAZID
     Indication: Adrenal gland tuberculosis
     Dosage: UNK (RECHALLENGE DOSE)
     Route: 065
  3. ISONIAZID [Suspect]
     Active Substance: ISONIAZID
     Indication: Peritoneal tuberculosis
     Dosage: UNK (THERAPY RESTARTED)
     Route: 065
  4. RIFAMPIN [Suspect]
     Active Substance: RIFAMPIN
     Indication: Adrenal gland tuberculosis
     Dosage: UNK
     Route: 065
  5. RIFAMPIN [Suspect]
     Active Substance: RIFAMPIN
     Indication: Peritoneal tuberculosis
     Dosage: UNK (RECHALLENGE DOSE)
     Route: 065
  6. RIFAMPIN [Suspect]
     Active Substance: RIFAMPIN
     Dosage: UNK (THERAPY RESTARTED)
     Route: 065

REACTIONS (2)
  - Pancreatitis acute [Recovered/Resolved]
  - Lithiasis [Unknown]
